FAERS Safety Report 5405533-7 (Version None)
Quarter: 2007Q3

REPORT INFORMATION
  Report Type: 
  Country: None (occurrence: None)
  Receive Date: 20070803
  Receipt Date: 20070731
  Transmission Date: 20080115
  Serious: Yes (Hospitalization)
  Sender: FDA-Public Use
  Company Number: FR-MERCK-0707FRA00074

PATIENT
  Age: 52 Year
  Sex: Female

DRUGS (3)
  1. ZOCOR [Suspect]
     Indication: HYPERCHOLESTEROLAEMIA
     Route: 048
     Dates: start: 20020101, end: 20050101
  2. ZOCOR [Suspect]
     Route: 048
     Dates: start: 20050101, end: 20070730
  3. PROGESTERONE [Concomitant]
     Route: 048

REACTIONS (7)
  - CONSTIPATION [None]
  - MYALGIA [None]
  - PARAESTHESIA [None]
  - PRURITUS [None]
  - VASOSPASM [None]
  - WEIGHT DECREASED [None]
  - WRONG TECHNIQUE IN DRUG USAGE PROCESS [None]
